FAERS Safety Report 23992337 (Version 2)
Quarter: 2024Q2

REPORT INFORMATION
  Report Type: Spontaneous
  Country: ES (occurrence: None)
  Receive Date: 20240620
  Receipt Date: 20240624
  Transmission Date: 20240716
  Serious: Yes (Hospitalization)
  Sender: FDA-Public Use
  Company Number: 2024A138779

PATIENT
  Age: 62 Year
  Sex: Male

DRUGS (22)
  1. OLAPARIB [Suspect]
     Active Substance: OLAPARIB
     Indication: Product used for unknown indication
     Route: 048
  2. CAPIVASERTIB [Suspect]
     Active Substance: CAPIVASERTIB
     Indication: Hormone-refractory prostate cancer
     Dosage: 320 MG ORAL, BD; 4 DAYS ON AND 3 DAYS OFF, WEEKLY
     Route: 048
     Dates: start: 20231214, end: 20240204
  3. INVESTIGATIONAL PRODUCT [Suspect]
     Active Substance: INVESTIGATIONAL PRODUCT
     Indication: Hormone-refractory prostate cancer
     Dosage: BD; 4 DAYS ON AND 3 DAYS OFF, WEEKLY
     Route: 048
     Dates: start: 20231214, end: 20240204
  4. DOCETAXEL [Suspect]
     Active Substance: DOCETAXEL\DOCETAXEL ANHYDROUS
     Indication: Hormone-refractory prostate cancer
     Dosage: 75 MG/M2 BSA, INTRAVENOUS INFUSION ON DAY 1 OF THE 21-DAY CYCLES FOR UP TO 6 TO 10 CYCLES
     Route: 042
     Dates: start: 20231213, end: 20240221
  5. GANFOT [Concomitant]
     Indication: Glaucoma
     Route: 047
     Dates: start: 20170525
  6. ALPHAGAN P [Concomitant]
     Active Substance: BRIMONIDINE TARTRATE
     Indication: Glaucoma
     Route: 047
     Dates: start: 20160306
  7. DEXKETOPROFEN TROMETAMOL [Concomitant]
     Active Substance: DEXKETOPROFEN TROMETAMOL
     Indication: Pain prophylaxis
     Dosage: 250.0MG AS REQUIRED
     Route: 048
     Dates: start: 20211202
  8. TAMSULOSIN HYDROCHLORIDE [Concomitant]
     Active Substance: TAMSULOSIN HYDROCHLORIDE
     Indication: Benign prostatic hyperplasia
     Route: 048
     Dates: start: 20211130
  9. METOCLOPRAMIDE [Concomitant]
     Active Substance: METOCLOPRAMIDE
     Indication: Prophylaxis of nausea and vomiting
     Dosage: 10.0MG AS REQUIRED
     Route: 048
     Dates: start: 20231208
  10. MIRTAZAPINE [Concomitant]
     Active Substance: MIRTAZAPINE
     Indication: Depression
     Route: 048
     Dates: start: 20231230
  11. CALCIUM PIDOLATE\CHOLECALCIFEROL [Concomitant]
     Active Substance: CALCIUM PIDOLATE\CHOLECALCIFEROL
     Indication: Vitamin supplementation
     Route: 048
     Dates: start: 20230825
  12. BEMPEDOIC ACID [Concomitant]
     Active Substance: BEMPEDOIC ACID
     Indication: Dyslipidaemia
     Route: 048
     Dates: start: 20231026
  13. PREGABALIN [Concomitant]
     Active Substance: PREGABALIN
     Indication: Groin pain
     Route: 048
     Dates: start: 20231231
  14. ACETAMINOPHEN [Concomitant]
     Active Substance: ACETAMINOPHEN
     Indication: Groin pain
     Dosage: 1000.0MG UNKNOWN
     Route: 048
     Dates: start: 20240103
  15. DIAZEPAM [Concomitant]
     Active Substance: DIAZEPAM
     Indication: Groin pain
     Route: 048
     Dates: start: 20240204
  16. MORPHINE [Concomitant]
     Active Substance: MORPHINE
     Indication: Pain
     Dosage: 20.0MG AS REQUIRED
     Route: 048
     Dates: start: 20240206
  17. DEXAMETHASONE [Concomitant]
     Active Substance: DEXAMETHASONE
     Indication: Prophylaxis
     Route: 048
     Dates: start: 20240124, end: 20240306
  18. DEXAMETHASONE [Concomitant]
     Active Substance: DEXAMETHASONE
     Indication: Prophylaxis
     Route: 048
     Dates: start: 20240306
  19. MST MORPHINE [Concomitant]
     Indication: Groin pain
     Route: 048
     Dates: start: 20231231, end: 20240306
  20. MST MORPHINE [Concomitant]
     Indication: Groin pain
     Dosage: 20 MG IN THE MORNING, 15 MG AT NIGHT
     Route: 048
     Dates: start: 20240306, end: 20240309
  21. MST MORPHINE [Concomitant]
     Indication: Groin pain
     Route: 048
     Dates: start: 20240309
  22. DECAPEPTYL [Concomitant]
     Indication: Targeted cancer therapy
     Dates: start: 202111

REACTIONS (1)
  - Pancytopenia [Recovered/Resolved]

NARRATIVE: CASE EVENT DATE: 20240329
